FAERS Safety Report 15922502 (Version 1)
Quarter: 2019Q1

REPORT INFORMATION
  Report Type: Spontaneous
  Country: TH (occurrence: TH)
  Receive Date: 20190206
  Receipt Date: 20190206
  Transmission Date: 20190417
  Serious: Yes (Other)
  Sender: FDA-Public Use
  Company Number: TH-ROCHE-2257031

PATIENT
  Age: 4 Year
  Sex: Male

DRUGS (3)
  1. ROCEPHIN [Suspect]
     Active Substance: CEFTRIAXONE SODIUM
     Indication: INFLUENZA
     Route: 041
     Dates: start: 20190127, end: 20190128
  2. TAMIFLU [Suspect]
     Active Substance: OSELTAMIVIR PHOSPHATE
     Indication: INFLUENZA
     Route: 065
     Dates: start: 20190127
  3. ROCEPHIN [Suspect]
     Active Substance: CEFTRIAXONE SODIUM
     Route: 040
     Dates: start: 20190129

REACTIONS (1)
  - Anaphylactic reaction [Unknown]

NARRATIVE: CASE EVENT DATE: 20190129
